FAERS Safety Report 8365691-1 (Version None)
Quarter: 2012Q2

REPORT INFORMATION
  Report Type: 
  Country: None (occurrence: None)
  Receive Date: 20120516
  Receipt Date: 20120503
  Transmission Date: 20120825
  Serious: Yes (Other)
  Sender: FDA-Public Use
  Company Number: PT-MYLANLABS-2012S1009478

PATIENT
  Age: 14 Year
  Sex: Male

DRUGS (1)
  1. ISOTRETINOIN [Suspect]
     Indication: PITYRIASIS RUBRA PILARIS
     Route: 065

REACTIONS (2)
  - PEMPHIGOID [None]
  - LICHEN PLANUS [None]
